FAERS Safety Report 6447812-0 (Version None)
Quarter: 2009Q4

REPORT INFORMATION
  Report Type: 
  Country: None (occurrence: None)
  Receive Date: 20091120
  Receipt Date: 20091001
  Transmission Date: 20100525
  Serious: No
  Sender: FDA-Public Use
  Company Number: A0802515A

PATIENT
  Age: 57 Year
  Sex: Female

DRUGS (4)
  1. VERAMYST [Suspect]
     Indication: SINUS DISORDER
     Dosage: 4SPR TWICE PER DAY
     Route: 045
     Dates: start: 20080801
  2. NEXIUM [Concomitant]
  3. CRESTOR [Concomitant]
  4. LEVOXYL [Concomitant]

REACTIONS (2)
  - PRODUCT QUALITY ISSUE [None]
  - RHINALGIA [None]
